FAERS Safety Report 8798326 (Version 2)
Quarter: 2012Q4

REPORT INFORMATION
  Report Type: Spontaneous
  Country: US (occurrence: None)
  Receive Date: 20120913
  Receipt Date: 20120925
  Transmission Date: 20130627
  Serious: Yes (Hospitalization, Other)
  Sender: FDA-Public Use
  Company Number: JPI-P-024995

PATIENT
  Age: 49 Year
  Sex: Male

DRUGS (13)
  1. XYREM (500 MILLIGRAM/MILLILITERS, SOLUTION)(SODIUM OXYBATE) [Suspect]
     Indication: NARCOLEPSY
     Dosage: (2.25 gm, 2 in 1 d)
     Route: 048
     Dates: start: 20120202, end: 2012
  2. XYREM (500 MILLIGRAM/MILLILITERS, SOLUTION)(SODIUM OXYBATE) [Suspect]
     Indication: NARCOLEPSY
     Route: 048
     Dates: start: 2012, end: 2012
  3. XYREM (500 MILLIGRAM/MILLILITERS, SOLUTION)(SODIUM OXYBATE) [Suspect]
     Indication: NARCOLEPSY
     Dosage: (4.5 gm, 2 in 1 d)
     Route: 048
     Dates: start: 20120606
  4. ANASTROZOLE [Concomitant]
  5. DULOXETINE [Concomitant]
  6. GABAPENTIN [Concomitant]
  7. HYDROCODONE [Concomitant]
  8. HYDROMORPHONE [Concomitant]
  9. PRIMIDONE [Concomitant]
  10. AMPHETAMINE, DEXTROAMPHETAMINE MIXED SALTS [Concomitant]
  11. PRAMIPEXOLE [Concomitant]
  12. VITAMIN D [Concomitant]
  13. TRAMADOL [Concomitant]

REACTIONS (9)
  - Neuroma [None]
  - Osteomyelitis [None]
  - Localised infection [None]
  - Lymphoedema [None]
  - Photophobia [None]
  - Headache [None]
  - Fatigue [None]
  - Drug ineffective [None]
  - Enuresis [None]
